FAERS Safety Report 15458046 (Version 2)
Quarter: 2019Q2

REPORT INFORMATION
  Report Type: Report from Study
  Country: US (occurrence: US)
  Receive Date: 20181003
  Receipt Date: 20190505
  Transmission Date: 20190711
  Serious: Yes (Other)
  Sender: FDA-Public Use
  Company Number: PHEH2018US040800

PATIENT
  Age: 86 Year
  Sex: Male

DRUGS (1)
  1. ENTRESTO [Suspect]
     Active Substance: SACUBITRIL\VALSARTAN
     Indication: CARDIAC FAILURE
     Dosage: UNK
     Route: 048

REACTIONS (6)
  - Dyspnoea [Unknown]
  - Feeling hot [Unknown]
  - Skin irritation [Unknown]
  - Skin cancer [Unknown]
  - Rash [Unknown]
  - Device malfunction [Unknown]

NARRATIVE: CASE EVENT DATE: 20190429
